FAERS Safety Report 15129052 (Version 1)
Quarter: 2018Q4

REPORT INFORMATION
  Report Type: Spontaneous
  Country: US (occurrence: US)
  Receive Date: 20180711
  Receipt Date: 20180711
  Transmission Date: 20190204
  Serious: No
  Sender: FDA-Public Use
  Company Number: US-CEDIPROF, INC.-2051713

PATIENT
  Sex: Female
  Weight: 59.09 kg

DRUGS (2)
  1. LEVO-T [Suspect]
     Active Substance: LEVOTHYROXINE SODIUM
     Route: 048
  2. VALSARTAN. [Concomitant]
     Active Substance: VALSARTAN

REACTIONS (2)
  - Back pain [Not Recovered/Not Resolved]
  - Bone pain [Not Recovered/Not Resolved]
